FAERS Safety Report 18781560 (Version 2)
Quarter: 2022Q4

REPORT INFORMATION
  Report Type: Spontaneous
  Country: MY (occurrence: MY)
  Receive Date: 20210125
  Receipt Date: 20221013
  Transmission Date: 20230113
  Serious: Yes (Other)
  Sender: FDA-Public Use
  Company Number: MY-SUN PHARMACEUTICAL INDUSTRIES LTD-2021R1-277128

PATIENT
  Age: 39 Year
  Sex: Female

DRUGS (1)
  1. DECITABINE [Suspect]
     Active Substance: DECITABINE
     Indication: Acute myeloid leukaemia
     Dosage: 10 MILLIGRAM/SQ. METER 5 DAYS EVERY 28-DAYS
     Route: 042
     Dates: start: 20160715, end: 20170207

REACTIONS (2)
  - Teratogenicity [Unknown]
  - Exposure during pregnancy [Unknown]

NARRATIVE: CASE EVENT DATE: 20170620
